FAERS Safety Report 8408129-8 (Version None)
Quarter: 2012Q2

REPORT INFORMATION
  Report Type: 
  Country: None (occurrence: None)
  Receive Date: 20120604
  Receipt Date: 20120216
  Transmission Date: 20120825
  Serious: No
  Sender: FDA-Public Use
  Company Number: US-MYLANLABS-2012S1003445

PATIENT
  Age: 61 Year
  Sex: Female

DRUGS (1)
  1. EPROSARTAN MESYLATE TABLETS [Suspect]
     Dates: start: 20120215, end: 20120216

REACTIONS (2)
  - MIGRAINE [None]
  - OROPHARYNGEAL PAIN [None]
